FAERS Safety Report 5246956-9 (Version None)
Quarter: 2007Q1

REPORT INFORMATION
  Report Type: 
  Country: None (occurrence: None)
  Receive Date: 20070226
  Receipt Date: 20070223
  Transmission Date: 20070707
  Serious: Yes (Congenital Anomaly)
  Sender: FDA-Public Use
  Company Number: US-GLAXOSMITHKLINE-A0614734A

PATIENT

DRUGS (3)
  1. BUPROPION HCL [Suspect]
     Indication: MAJOR DEPRESSION
     Dosage: 100MG PER DAY
  2. ZOLOFT [Suspect]
     Indication: DRUG USE FOR UNKNOWN INDICATION
  3. PRENATAL VITAMINS [Concomitant]

REACTIONS (4)
  - ABDOMINAL TRANSPOSITION [None]
  - ATRIOVENTRICULAR SEPTAL DEFECT [None]
  - DRUG EXPOSURE DURING PREGNANCY [None]
  - PULMONARY VALVE STENOSIS CONGENITAL [None]
